FAERS Safety Report 14853512 (Version 1)
Quarter: 2018Q2

REPORT INFORMATION
  Report Type: Spontaneous
  Country: IT (occurrence: IT)
  Receive Date: 20180507
  Receipt Date: 20180507
  Transmission Date: 20180711
  Serious: Yes (Other)
  Sender: FDA-Public Use
  Company Number: PHHY2018IT002377

PATIENT
  Age: 58 Year
  Sex: Female
  Weight: 62 kg

DRUGS (2)
  1. CYCLOPHOSPHAMIDE. [Suspect]
     Active Substance: CYCLOPHOSPHAMIDE
     Indication: BREAST CANCER
     Dosage: 960 MG, CYCLIC
     Route: 042
     Dates: start: 20170509, end: 20170822
  2. DOCETAXEL. [Suspect]
     Active Substance: DOCETAXEL
     Indication: BREAST CANCER
     Dosage: 120 MG, CYCLIC
     Route: 042
     Dates: start: 20170509, end: 20170822

REACTIONS (1)
  - Neuromuscular toxicity [Not Recovered/Not Resolved]

NARRATIVE: CASE EVENT DATE: 20170801
